FAERS Safety Report 11712302 (Version 1)
Quarter: 2015Q4

REPORT INFORMATION
  Report Type: Spontaneous
  Country: US (occurrence: US)
  Receive Date: 20151104
  Receipt Date: 20151104
  Transmission Date: 20160304
  Serious: No
  Sender: FDA-Public Use
  Company Number: US-ELI_LILLY_AND_COMPANY-US201103006275

PATIENT
  Sex: Female

DRUGS (4)
  1. FORTEO [Suspect]
     Active Substance: TERIPARATIDE
     Indication: OSTEOPOROSIS
     Dosage: 20 UG, QD
     Route: 065
     Dates: end: 20110601
  2. NEXIUM [Concomitant]
     Active Substance: ESOMEPRAZOLE MAGNESIUM
  3. ACTONEL [Concomitant]
     Active Substance: RISEDRONATE SODIUM
  4. FORTEO [Suspect]
     Active Substance: TERIPARATIDE
     Dosage: 20 UG, QD
     Route: 065
     Dates: start: 20110615

REACTIONS (14)
  - Lip exfoliation [Recovering/Resolving]
  - Adverse drug reaction [Unknown]
  - Lip pain [Recovering/Resolving]
  - Diarrhoea [Recovered/Resolved]
  - Nephrolithiasis [Unknown]
  - Lip disorder [Recovering/Resolving]
  - Dry mouth [Recovering/Resolving]
  - Lip swelling [Not Recovered/Not Resolved]
  - Weight decreased [Unknown]
  - Burning sensation mucosal [Unknown]
  - Skin hypertrophy [Unknown]
  - Diarrhoea [Recovered/Resolved]
  - Cheilitis [Unknown]
  - Gastrointestinal disorder [Recovered/Resolved]

NARRATIVE: CASE EVENT DATE: 2010
